FAERS Safety Report 6060986-9 (Version None)
Quarter: 2009Q1

REPORT INFORMATION
  Report Type: 
  Country: None (occurrence: None)
  Receive Date: 20090202
  Receipt Date: 20090122
  Transmission Date: 20090719
  Serious: Yes (Other)
  Sender: FDA-Public Use
  Company Number: US-JNJFOC-20090106365

PATIENT
  Sex: Female
  Weight: 42.64 kg

DRUGS (1)
  1. DURAGESIC-100 [Suspect]
     Indication: ARTHRALGIA
     Route: 062

REACTIONS (3)
  - JOINT SWELLING [None]
  - MUSCULOSKELETAL PAIN [None]
  - UNRESPONSIVE TO STIMULI [None]
